FAERS Safety Report 5768386-3 (Version None)
Quarter: 2008Q2

REPORT INFORMATION
  Report Type: 
  Country: None (occurrence: None)
  Receive Date: 20080612
  Receipt Date: 20080304
  Transmission Date: 20081010
  Serious: No
  Sender: FDA-Public Use
  Company Number: US-ABBOTT-08P-163-0440743-00

PATIENT
  Sex: Female
  Weight: 97.61 kg

DRUGS (2)
  1. HUMIRA [Suspect]
     Indication: CROHN'S DISEASE
     Route: 058
     Dates: end: 20080223
  2. ACETAMINOPHEN [Concomitant]
     Indication: PERIRECTAL ABSCESS

REACTIONS (1)
  - RASH ERYTHEMATOUS [None]
